FAERS Safety Report 8152933-0 (Version None)
Quarter: 2012Q1

REPORT INFORMATION
  Report Type: 
  Country: None (occurrence: None)
  Receive Date: 20120103
  Receipt Date: 20111030
  Transmission Date: 20120608
  Serious: No
  Sender: FDA-Public Use
  Company Number: AE-2011-002886

PATIENT
  Age: 54 Year
  Sex: Female
  Weight: 77.1115 kg

DRUGS (5)
  1. RIBAVIRIN [Concomitant]
  2. PEGINTERFERON (PEGINTERFERON ALFA-2A) [Concomitant]
  3. INCIVEK [Suspect]
     Dosage: 6 DOSAGE FORMS (2 DOSAGE FORMS, 3 IN 1 D), ORAL
     Route: 048
     Dates: start: 20110918
  4. CELEBREX [Concomitant]
  5. AMBIEN [Concomitant]

REACTIONS (2)
  - HAEMORRHOIDS [None]
  - RASH PRURITIC [None]
